FAERS Safety Report 9982218 (Version 1)
Quarter: 2014Q1

REPORT INFORMATION
  Report Type: Report from Study
  Country: US (occurrence: US)
  Receive Date: 20140307
  Receipt Date: 20140307
  Transmission Date: 20141002
  Serious: No
  Sender: FDA-Public Use
  Company Number: US-ABBVIE-13P-163-1176106-00

PATIENT
  Age: 60 Year
  Sex: Male
  Weight: 113.5 kg

DRUGS (4)
  1. HUMIRA [Suspect]
     Indication: PSORIASIS
     Dates: start: 2012, end: 201305
  2. HUMIRA [Suspect]
     Indication: PSORIATIC ARTHROPATHY
  3. LISINOPRIL [Concomitant]
     Indication: HYPERTENSION
  4. CARVEDILOL [Concomitant]
     Indication: HYPERTENSION

REACTIONS (2)
  - Rebound psoriasis [Not Recovered/Not Resolved]
  - Psoriatic arthropathy [Not Recovered/Not Resolved]
